FAERS Safety Report 4528266-8 (Version None)
Quarter: 2004Q4

REPORT INFORMATION
  Report Type: 
  Country: None (occurrence: None)
  Receive Date: 20041130
  Receipt Date: 20040728
  Transmission Date: 20050328
  Serious: No
  Sender: FDA-Public Use
  Company Number: WAES 0407USA02464

PATIENT
  Age: 60 Year
  Sex: Female
  Weight: 92.5338 kg

DRUGS (6)
  1. ZETIA [Suspect]
     Indication: BLOOD CHOLESTEROL INCREASED
     Dosage: 10 MG DAILY PO
     Route: 048
     Dates: start: 20040101
  2. ZETIA [Suspect]
     Indication: DYSLIPIDAEMIA
     Dosage: 10 MG DAILY PO
     Route: 048
     Dates: start: 20040101
  3. COZAAR [Concomitant]
  4. ECOTRIN [Concomitant]
  5. NIASPAN [Concomitant]
  6. ZOCOR [Concomitant]

REACTIONS (1)
  - URTICARIA [None]
